FAERS Safety Report 16374070 (Version 1)
Quarter: 2019Q2

REPORT INFORMATION
  Report Type: Spontaneous
  Country: ES (occurrence: ES)
  Receive Date: 20190530
  Receipt Date: 20190530
  Transmission Date: 20190711
  Serious: Yes (Other)
  Sender: FDA-Public Use
  Company Number: ES-MYLANLABS-2019M1049531

PATIENT
  Age: 47 Year
  Sex: Female

DRUGS (1)
  1. ACETYLCYSTEINE. [Suspect]
     Active Substance: ACETYLCYSTEINE
     Indication: UPPER RESPIRATORY TRACT INFECTION
     Dosage: UNK
     Route: 048
     Dates: start: 201809, end: 20180922

REACTIONS (4)
  - Medication error [Unknown]
  - Asthma [Recovered/Resolved]
  - Condition aggravated [Recovered/Resolved]
  - Labelled drug-disease interaction medication error [Recovered/Resolved]

NARRATIVE: CASE EVENT DATE: 20180922
